FAERS Safety Report 6473576-0 (Version None)
Quarter: 2009Q4

REPORT INFORMATION
  Report Type: 
  Country: None (occurrence: None)
  Receive Date: 20091204
  Receipt Date: 20090428
  Transmission Date: 20100525
  Serious: Yes (Hospitalization)
  Sender: FDA-Public Use
  Company Number: US-ELI_LILLY_AND_COMPANY-US200811005102

PATIENT
  Sex: Female
  Weight: 92.971 kg

DRUGS (13)
  1. BYETTA [Suspect]
     Indication: TYPE 2 DIABETES MELLITUS
     Dosage: 5 UG, 2/D
     Route: 058
     Dates: start: 20061001, end: 20061101
  2. BYETTA [Suspect]
     Dosage: 10 UG, 2/D
     Route: 058
     Dates: start: 20061101, end: 20080604
  3. METFORMIN HCL [Concomitant]
     Indication: TYPE 2 DIABETES MELLITUS
     Dosage: 500 MG, 2/D
     Route: 048
  4. NOVOLOG MIX 70/30 [Concomitant]
     Indication: TYPE 2 DIABETES MELLITUS
     Dosage: UNK, UNKNOWN
     Route: 058
  5. LISINOPRIL [Concomitant]
     Dosage: UNK, UNKNOWN
     Route: 065
  6. ACTONEL [Concomitant]
     Indication: OSTEOPOROSIS
     Dosage: 35 MG, WEEKLY (1/W)
     Route: 048
  7. LEVOTHYROXINE SODIUM [Concomitant]
     Indication: THYROID DISORDER
     Dosage: 0.1 MG, DAILY (1/D)
     Route: 048
  8. LIPITOR [Concomitant]
     Indication: BLOOD CHOLESTEROL
     Dosage: 80 MG, DAILY (1/D)
     Route: 048
  9. PANTOPRAZOLE [Concomitant]
     Indication: GASTROOESOPHAGEAL REFLUX DISEASE
     Dosage: 40 MG, DAILY (1/D)
     Route: 048
  10. AMIODARONE HCL [Concomitant]
     Indication: CARDIAC DISORDER
     Dosage: 200 MG, DAILY (1/D)
     Route: 048
  11. DETROL [Concomitant]
     Indication: BLADDER DISORDER
     Dosage: UNK, DAILY (1/D)
     Route: 048
  12. INDAPAMIDE [Concomitant]
     Indication: HYPERTENSION
     Dosage: 2.5 MG, DAILY (1/D)
     Route: 048
  13. HUMALOG MIX                             /SPA/ [Concomitant]
     Indication: TYPE 2 DIABETES MELLITUS
     Route: 058

REACTIONS (1)
  - HAEMORRHAGIC STROKE [None]
